FAERS Safety Report 6176161-3 (Version None)
Quarter: 2009Q2

REPORT INFORMATION
  Report Type: 
  Country: None (occurrence: None)
  Receive Date: 20090501
  Receipt Date: 20090427
  Transmission Date: 20091009
  Serious: Yes (Other)
  Sender: FDA-Public Use
  Company Number: A0780055A

PATIENT
  Age: 46 Year
  Sex: Female

DRUGS (1)
  1. NICODERM CQ [Suspect]
     Indication: SMOKING CESSATION THERAPY
     Route: 062
     Dates: start: 20090422

REACTIONS (10)
  - APPLICATION SITE IRRITATION [None]
  - APPLICATION SITE PRURITUS [None]
  - APPLICATION SITE RASH [None]
  - BURNING SENSATION [None]
  - DYSPNOEA [None]
  - HYPERSENSITIVITY [None]
  - HYPOAESTHESIA [None]
  - PAIN IN EXTREMITY [None]
  - PULMONARY OEDEMA [None]
  - URTICARIA [None]
